FAERS Safety Report 22131179 (Version 1)
Quarter: 2023Q1

REPORT INFORMATION
  Report Type: Spontaneous
  Country: US (occurrence: None)
  Receive Date: 20230322
  Receipt Date: 20230322
  Transmission Date: 20230417
  Serious: Yes (Other)
  Sender: FDA-Public Use
  Company Number: None

PATIENT
  Age: 65 Year
  Sex: Male
  Weight: 87.75 kg

DRUGS (4)
  1. MYRBETRIQ [Suspect]
     Active Substance: MIRABEGRON
     Indication: Hypertonic bladder
     Dosage: OTHER QUANTITY : 1 TABLET(S);?FREQUENCY : DAILY;?
     Route: 048
     Dates: start: 20230309, end: 20230319
  2. Metoprolol Levothyroxin [Concomitant]
  3. VITAMIN D [Concomitant]
     Active Substance: VITAMIN D NOS
  4. MELATONIN [Concomitant]
     Active Substance: MELATONIN

REACTIONS (10)
  - Feeling abnormal [None]
  - Insomnia [None]
  - Job dissatisfaction [None]
  - Phobia of driving [None]
  - Visual impairment [None]
  - Pruritus [None]
  - Furuncle [None]
  - Rash [None]
  - Brief resolved unexplained event [None]
  - Product complaint [None]

NARRATIVE: CASE EVENT DATE: 20230320
